FAERS Safety Report 8587697-X (Version None)
Quarter: 2012Q3

REPORT INFORMATION
  Report Type: 
  Country: None (occurrence: None)
  Receive Date: 20120813
  Receipt Date: 20120203
  Transmission Date: 20120928
  Serious: Yes (Other)
  Sender: FDA-Public Use
  Company Number: PHEH2012US015311

PATIENT
  Sex: Male

DRUGS (14)
  1. RISPERIDONE [Suspect]
     Dosage: 50 MG, BID
  2. DEPAKOTE [Suspect]
     Dosage: 125 MG, QD
  3. TEGRETOL [Suspect]
     Dosage: 150 MG, TID
  4. LITHIUM CARBONATE [Suspect]
     Dosage: 900 MG, QD
  5. TRILEPTAL [Suspect]
     Dosage: 25 MG, QD
  6. METADATE CD [Suspect]
     Dosage: 25 MG
  7. ZYPREXA [Concomitant]
     Dosage: 20 MG, QD
  8. ABILIFY [Suspect]
     Dosage: 40 MG, QD
  9. CLOZARIL [Suspect]
     Indication: SCHIZOPHRENIA
  10. KLONOPIN [Suspect]
     Dosage: 1 MG, QD (MRN)
  11. CLONIDINE [Suspect]
     Dosage: 0.02 MG, BID
  12. STRATTERA [Suspect]
     Dosage: 50 MG, QD
  13. ZOLOFT [Suspect]
     Dosage: 25 MG, QD
  14. SEROQUEL [Suspect]
     Dosage: 25 MG, QD

REACTIONS (2)
  - DYSTONIA [None]
  - TIC [None]
